FAERS Safety Report 7505308-9 (Version None)
Quarter: 2011Q2

REPORT INFORMATION
  Report Type: 
  Country: None (occurrence: None)
  Receive Date: 20110526
  Receipt Date: 20110517
  Transmission Date: 20111010
  Serious: Yes (Hospitalization)
  Sender: FDA-Public Use
  Company Number: US-ASTRAZENECA-2011SE26767

PATIENT
  Age: 18834 Day
  Sex: Female

DRUGS (36)
  1. VANDETANIB [Suspect]
     Indication: THYROID CANCER
     Dosage: BLINDED THERAPY
     Route: 048
     Dates: start: 20071027, end: 20080313
  2. NEXIUM [Concomitant]
     Indication: GASTROOESOPHAGEAL REFLUX DISEASE
     Dosage: 40 DAILY
     Route: 048
     Dates: start: 20080702
  3. LEVOXYL [Concomitant]
     Dosage: 125 DAILY
     Route: 048
     Dates: start: 20090414, end: 20100404
  4. KLOR-CON [Concomitant]
     Indication: MINERAL SUPPLEMENTATION
     Dosage: 60 DAILY
     Route: 048
     Dates: start: 20100505
  5. AZELEZ [Concomitant]
     Indication: PHOTOSENSITIVITY REACTION
     Route: 061
     Dates: start: 20101020
  6. VANDETANIB [Suspect]
     Dosage: BLINDED THERAPY
     Route: 048
     Dates: start: 20080324, end: 20080410
  7. VANDETANIB [Suspect]
     Dosage: OPEN LABEL THERAPY
     Route: 048
     Dates: start: 20100209, end: 20100405
  8. LOMOTIL [Concomitant]
     Indication: DIARRHOEA
     Route: 048
     Dates: start: 20080407
  9. TINCTURE OF OPIUM [Concomitant]
     Indication: DIARRHOEA
     Route: 048
     Dates: start: 20080701
  10. MAGNESIUM SULFATE [Concomitant]
     Indication: MINERAL SUPPLEMENTATION
     Dosage: 1200 DAILY
     Route: 048
     Dates: start: 20100409
  11. LEVOXYL [Concomitant]
     Dosage: 250 DAILY
     Route: 048
     Dates: start: 20100324, end: 20100324
  12. LEVOXYL [Concomitant]
     Dosage: 160 DAILY
     Route: 048
     Dates: start: 20100505
  13. LEVOXYL [Concomitant]
     Dosage: 160 DAILY
     Route: 048
     Dates: start: 20100505
  14. AMBIEN [Concomitant]
     Indication: INSOMNIA
     Route: 048
     Dates: start: 20100223
  15. LEVOXYL [Concomitant]
     Indication: HYPOTHYROIDISM
     Dosage: 137 DAILY
     Route: 048
     Dates: end: 20080721
  16. LEVOXYL [Concomitant]
     Dosage: 125 DAILY
     Route: 048
     Dates: start: 20090414, end: 20100404
  17. ACETAMINOPHEN [Concomitant]
     Indication: PAIN IN EXTREMITY
     Route: 048
  18. ERGOCALCIFEROL [Concomitant]
     Indication: VITAMIN SUPPLEMENTATION
     Dosage: 50000 DAILY
     Route: 048
     Dates: start: 20100406
  19. LEVOXYL [Concomitant]
     Dosage: 125 DAILY
     Route: 048
     Dates: start: 20080722, end: 20081015
  20. LEVOXYL [Concomitant]
     Dosage: 112 DAILY
     Route: 048
     Dates: start: 20081016, end: 20090413
  21. ALPRAZOLAM [Concomitant]
     Indication: ANXIETY
     Route: 048
     Dates: start: 20100505
  22. VANDETANIB [Suspect]
     Dosage: OPEN LABEL THERAPY
     Route: 048
     Dates: start: 20110517
  23. LEVOXYL [Concomitant]
     Dosage: 125 DAILY
     Route: 048
     Dates: start: 20080722, end: 20081015
  24. LEVOXYL [Concomitant]
     Dosage: 250 DAILY
     Route: 048
     Dates: start: 20100324, end: 20100324
  25. LEVOXYL [Concomitant]
     Dosage: 150 DAILY
     Route: 048
     Dates: start: 20100405, end: 20100504
  26. METROGEL [Concomitant]
     Indication: PHOTOSENSITIVITY REACTION
     Route: 061
     Dates: start: 20101020
  27. VANDETANIB [Suspect]
     Dosage: OPEN LABEL THERAPY
     Route: 048
     Dates: start: 20100420, end: 20110113
  28. ALKA-SELTZER (INGREDIENTS UNKNOWN) [Concomitant]
     Indication: PAIN PROPHYLAXIS
     Route: 048
     Dates: start: 20080922
  29. LEVOXYL [Concomitant]
     Indication: THYROXINE THERAPY
     Dosage: 137 DAILY
     Route: 048
     Dates: end: 20080721
  30. LEVOXYL [Concomitant]
     Dosage: 150 DAILY
     Route: 048
     Dates: start: 20100405, end: 20100504
  31. ACETAMINOPHEN [Concomitant]
     Indication: HEADACHE
     Route: 048
  32. ACETAMINOPHEN [Concomitant]
     Indication: TOOTHACHE
     Route: 048
  33. LEVOXYL [Concomitant]
     Dosage: 112 DAILY
     Route: 048
     Dates: start: 20081016, end: 20090413
  34. ALPRAZOLAM [Concomitant]
     Indication: MOOD ALTERED
     Route: 048
     Dates: start: 20100505
  35. VANDETANIB [Suspect]
     Dosage: BLINDED THERAPY
     Route: 048
     Dates: start: 20080426, end: 20100120
  36. VANDETANIB [Suspect]
     Dosage: OPEN LABEL THERAPY
     Route: 048
     Dates: start: 20110129, end: 20110503

REACTIONS (2)
  - DIZZINESS [None]
  - NAUSEA [None]
